FAERS Safety Report 10344425 (Version 1)
Quarter: 2014Q3

REPORT INFORMATION
  Report Type: Spontaneous
  Country: US (occurrence: None)
  Receive Date: 20140724
  Receipt Date: 20140724
  Transmission Date: 20150326
  Serious: Yes (Disabling, Other)
  Sender: FDA-Public Use
  Company Number: None

PATIENT
  Age: 26 Year
  Sex: Female
  Weight: 49.9 kg

DRUGS (2)
  1. BUPROPION XL [Suspect]
     Active Substance: BUPROPION
     Indication: DEPRESSION
     Dosage: 1 PILL  ONCE DAILY  TAKEN BY MOUTH
     Route: 048
     Dates: start: 20140101, end: 20140701
  2. BUPROPION XL [Suspect]
     Active Substance: BUPROPION
     Indication: ATTENTION DEFICIT/HYPERACTIVITY DISORDER
     Dosage: 1 PILL  ONCE DAILY  TAKEN BY MOUTH
     Route: 048
     Dates: start: 20140101, end: 20140701

REACTIONS (6)
  - Drug ineffective [None]
  - Asthenia [None]
  - Disturbance in attention [None]
  - Nocturia [None]
  - Depression [None]
  - Product substitution issue [None]
